FAERS Safety Report 15855268 (Version 1)
Quarter: 2019Q1

REPORT INFORMATION
  Report Type: Spontaneous
  Country: GB (occurrence: GB)
  Receive Date: 20190122
  Receipt Date: 20190122
  Transmission Date: 20190417
  Serious: Yes (Other)
  Sender: FDA-Public Use
  Company Number: PHHY2019GB012124

PATIENT
  Age: 20 Year
  Sex: Female
  Weight: 71 kg

DRUGS (1)
  1. METRONIDAZOLE. [Suspect]
     Active Substance: METRONIDAZOLE
     Indication: TOOTH INFECTION
     Dosage: 400 MG, UNK
     Route: 048

REACTIONS (3)
  - Suicidal ideation [Recovering/Resolving]
  - Flat affect [Unknown]
  - Depressed mood [Unknown]

NARRATIVE: CASE EVENT DATE: 20190106
